FAERS Safety Report 4503032-8 (Version None)
Quarter: 2004Q4

REPORT INFORMATION
  Report Type: 
  Country: None (occurrence: None)
  Receive Date: 20041112
  Receipt Date: 20041029
  Transmission Date: 20050328
  Serious: Yes (Other)
  Sender: FDA-Public Use
  Company Number: 200415267BCC

PATIENT
  Age: 35 Year
  Sex: Male
  Weight: 90.7194 kg

DRUGS (2)
  1. RID MOUSSE [Suspect]
     Indication: LICE INFESTATION
     Dosage: BID, TOPICAL
     Route: 061
     Dates: start: 20041028
  2. EQUATE LICE SHAMPOO (PYRETHRUM EXTRACT) [Suspect]
     Dates: start: 20041026, end: 20041027

REACTIONS (7)
  - BURNING SENSATION [None]
  - ERYTHEMA [None]
  - FEELING HOT [None]
  - PAIN [None]
  - SKIN BLEEDING [None]
  - SKIN DISCOLOURATION [None]
  - VISUAL DISTURBANCE [None]
